FAERS Safety Report 6991364-3 (Version None)
Quarter: 2010Q3

REPORT INFORMATION
  Report Type: 
  Country: None (occurrence: None)
  Receive Date: 20100916
  Receipt Date: 20090818
  Transmission Date: 20110219
  Serious: No
  Sender: FDA-Public Use
  Company Number: US-WYE-H10640509

PATIENT
  Sex: Female
  Weight: 56.75 kg

DRUGS (4)
  1. PRISTIQ [Suspect]
     Indication: DEPRESSION
     Route: 048
     Dates: start: 20090701, end: 20090813
  2. PRISTIQ [Suspect]
     Indication: ANXIETY
  3. KLONOPIN [Concomitant]
  4. TAMOXIFEN CITRATE [Concomitant]

REACTIONS (8)
  - ABNORMAL DREAMS [None]
  - BALANCE DISORDER [None]
  - COORDINATION ABNORMAL [None]
  - CRYING [None]
  - DRUG WITHDRAWAL SYNDROME [None]
  - FATIGUE [None]
  - IRRITABILITY [None]
  - TINNITUS [None]
